FAERS Safety Report 25436291 (Version 1)
Quarter: 2025Q2

REPORT INFORMATION
  Report Type: Spontaneous
  Country: ES (occurrence: ES)
  Receive Date: 20250614
  Receipt Date: 20250614
  Transmission Date: 20250717
  Serious: Yes (Other)
  Sender: AUROBINDO
  Company Number: ES-AEMPS-1684853

PATIENT
  Age: 65 Year
  Sex: Male
  Weight: 79.2 kg

DRUGS (1)
  1. TAMSULOSIN HYDROCHLORIDE [Suspect]
     Active Substance: TAMSULOSIN HYDROCHLORIDE
     Indication: Epididymitis
     Dosage: 0.4 MILLIGRAM, ONCE A DAY (1 CAPSULE WITH BREAKFAST)
     Route: 048
     Dates: start: 20250411, end: 20250521

REACTIONS (1)
  - Erectile dysfunction [Recovering/Resolving]

NARRATIVE: CASE EVENT DATE: 20250411
